FAERS Safety Report 8760497 (Version 1)
Quarter: 2012Q4

REPORT INFORMATION
  Report Type: 
  Country: US (occurrence: US)
  Receive Date: 20120830
  Receipt Date: 20120830
  Transmission Date: 20130627
  Serious: Yes (Other)
  Sender: FDA-Public Use
  Company Number: PHEH2012US016735

PATIENT
  Sex: Male

DRUGS (6)
  1. TASIGNA [Suspect]
     Indication: CHRONIC MYELOID LEUKAEMIA
     Dosage: 300 mg, Q12H
     Route: 048
     Dates: start: 20110909
  2. LEVOFLOXACIN [Suspect]
  3. METRONIDAZOLE [Suspect]
  4. MAGNESIUM [Concomitant]
  5. CALCIUM [Concomitant]
  6. IMODIUM [Concomitant]

REACTIONS (6)
  - Anal abscess [Unknown]
  - Diarrhoea [Not Recovered/Not Resolved]
  - Night sweats [Not Recovered/Not Resolved]
  - Pyrexia [Recovered/Resolved]
  - Chills [Recovered/Resolved]
  - Pollakiuria [Unknown]
